FAERS Safety Report 7276815-1 (Version None)
Quarter: 2011Q1

REPORT INFORMATION
  Report Type: 
  Country: None (occurrence: None)
  Receive Date: 20110207
  Receipt Date: 20110125
  Transmission Date: 20110831
  Serious: Yes (Other)
  Sender: FDA-Public Use
  Company Number: US-BIOGENIDEC-2010BI041087

PATIENT
  Age: 63 Year
  Sex: Female

DRUGS (1)
  1. TYSABRI [Suspect]
     Indication: MULTIPLE SCLEROSIS
     Route: 042
     Dates: start: 20080708

REACTIONS (5)
  - RENAL FAILURE [None]
  - CHEST PAIN [None]
  - OESOPHAGEAL DISCOMFORT [None]
  - CYSTITIS [None]
  - BLADDER HYPERTROPHY [None]
